FAERS Safety Report 10153239 (Version 2)
Quarter: 2014Q2

REPORT INFORMATION
  Report Type: Spontaneous
  Country: US (occurrence: US)
  Receive Date: 20140505
  Receipt Date: 20140505
  Transmission Date: 20141212
  Serious: Yes (Other)
  Sender: FDA-Public Use
  Company Number: PHHY2014US007980

PATIENT
  Age: 62 Year
  Sex: Male

DRUGS (5)
  1. TIMOLOL [Suspect]
  2. COSOPT [Suspect]
  3. LOTEMAX [Concomitant]
  4. LUMIGAN [Concomitant]
  5. PILOCARPINE [Concomitant]

REACTIONS (3)
  - Dermatitis contact [Recovered/Resolved]
  - Erythema [Recovered/Resolved]
  - Pruritus [Recovered/Resolved]
